FAERS Safety Report 9411166 (Version 4)
Quarter: 2013Q4

REPORT INFORMATION
  Report Type: Spontaneous
  Country: GB (occurrence: GB)
  Receive Date: 20130721
  Receipt Date: 20131029
  Transmission Date: 20140711
  Serious: Yes (Other)
  Sender: FDA-Public Use
  Company Number: PHFR2013GB003705

PATIENT
  Age: 41 Year
  Sex: Male

DRUGS (3)
  1. CLOZARIL [Suspect]
     Indication: SCHIZOPHRENIA
     Dosage: 50 MG, UNK
     Route: 048
     Dates: start: 201305
  2. CLOZARIL [Suspect]
     Dosage: UNK
     Route: 048
     Dates: start: 20130624
  3. CLOZARIL [Suspect]
     Dosage: 50 MG, DAILY
     Route: 048

REACTIONS (8)
  - Urinary tract infection [Recovered/Resolved]
  - Malaise [Recovered/Resolved]
  - Blood pressure decreased [Recovering/Resolving]
  - Fatigue [Recovering/Resolving]
  - Nausea [Recovered/Resolved]
  - Hyperhidrosis [Recovered/Resolved]
  - White blood cell count increased [Unknown]
  - Neutrophil count increased [Not Recovered/Not Resolved]
